FAERS Safety Report 12798756 (Version 2)
Quarter: 2016Q4

REPORT INFORMATION
  Report Type: Report from Study
  Country: AR (occurrence: AR)
  Receive Date: 20160930
  Receipt Date: 20161014
  Transmission Date: 20170207
  Serious: Yes (Hospitalization)
  Sender: FDA-Public Use
  Company Number: PHHY2016AR134816

PATIENT
  Sex: Female

DRUGS (3)
  1. DIOVAN [Suspect]
     Active Substance: VALSARTAN
     Indication: PRODUCT USED FOR UNKNOWN INDICATION
     Dosage: 160 MG, WHILE SHE WAS HOSPITALIZED
     Route: 065
  2. DIOVAN D [Suspect]
     Active Substance: HYDROCHLOROTHIAZIDE\VALSARTAN
     Indication: HYPERTENSION
     Dosage: 1 DF (HYDROCHLOROTHIAZIDE 25 MG, VALSARTAN 160 MG), QD
     Route: 065
  3. DIOVAN D [Suspect]
     Active Substance: HYDROCHLOROTHIAZIDE\VALSARTAN
     Dosage: 1 DF (HYDROCHLOROTHIAZIDE 25 MG, VALSARTAN 160 MG), QD
     Route: 065

REACTIONS (9)
  - Blood potassium decreased [Recovered/Resolved]
  - Polyuria [Recovered/Resolved]
  - Blood glucose abnormal [Recovered/Resolved]
  - Depressed mood [Recovered/Resolved]
  - Diabetes mellitus [Recovered/Resolved]
  - Drug dispensing error [Unknown]
  - Hyperglycaemia [Recovered/Resolved]
  - Confusional state [Unknown]
  - Feeling abnormal [Recovered/Resolved]
